FAERS Safety Report 8776853 (Version 2)
Quarter: 2012Q4

REPORT INFORMATION
  Report Type: Report from Study
  Country: FR (occurrence: FR)
  Receive Date: 20120911
  Receipt Date: 20121025
  Transmission Date: 20130627
  Serious: Yes (Hospitalization)
  Sender: FDA-Public Use
  Company Number: FR-JNJFOC-20120901696

PATIENT
  Age: 16 Year
  Sex: Female
  Weight: 46 kg

DRUGS (2)
  1. REMICADE [Suspect]
     Indication: CROHN^S DISEASE
     Route: 042
     Dates: start: 20080314
  2. HUMIRA [Suspect]
     Indication: CROHN^S DISEASE
     Dates: start: 20091211

REACTIONS (1)
  - Syncope [Recovered/Resolved]
